FAERS Safety Report 4688993-9 (Version None)
Quarter: 2005Q2

REPORT INFORMATION
  Report Type: 
  Country: None (occurrence: None)
  Receive Date: 20050613
  Receipt Date: 20050315
  Transmission Date: 20051028
  Serious: Yes (Hospitalization)
  Sender: FDA-Public Use
  Company Number: US-MERCK-0503USA03291

PATIENT
  Sex: Male

DRUGS (1)
  1. VIOXX [Suspect]
     Route: 065
     Dates: start: 19990101

REACTIONS (4)
  - ANXIETY [None]
  - EMOTIONAL DISTRESS [None]
  - MYOCARDIAL INFARCTION [None]
  - POLYTRAUMATISM [None]
